FAERS Safety Report 4378135-1 (Version None)
Quarter: 2004Q2

REPORT INFORMATION
  Report Type: 
  Country: None (occurrence: None)
  Receive Date: 20040616
  Receipt Date: 20040610
  Transmission Date: 20050107
  Serious: Yes (Hospitalization)
  Sender: FDA-Public Use
  Company Number: US-BRISTOL-MYERS SQUIBB COMPANY-12611257

PATIENT
  Age: 74 Year
  Sex: Male

DRUGS (9)
  1. CARBOPLATIN [Suspect]
     Indication: NON-SMALL CELL LUNG CANCER
     Dosage: CYCLE 1: 05-APR-2001 DAY 1
     Route: 042
     Dates: start: 20010501, end: 20010501
  2. GEMZAR [Suspect]
     Indication: NON-SMALL CELL LUNG CANCER
     Dosage: CYCLE 1: 05-APR-2001 DAY 1 AND 8
     Route: 042
     Dates: start: 20010508, end: 20010508
  3. LANOXIN [Concomitant]
  4. ASPIRIN [Concomitant]
  5. VERAPAMIL [Concomitant]
  6. ATROVENT [Concomitant]
  7. BROMIDES [Concomitant]
  8. BACTRIM [Concomitant]
  9. NOVAHISTINE [Concomitant]

REACTIONS (3)
  - PLATELET COUNT DECREASED [None]
  - PNEUMONITIS [None]
  - PULMONARY EMBOLISM [None]
